FAERS Safety Report 21190967 (Version 4)
Quarter: 2022Q4

REPORT INFORMATION
  Report Type: Report from Study
  Country: US (occurrence: US)
  Receive Date: 20220809
  Receipt Date: 20221114
  Transmission Date: 20230112
  Serious: Yes (Hospitalization)
  Sender: FDA-Public Use
  Company Number: NVSC2022US179437

PATIENT
  Sex: Female

DRUGS (1)
  1. ENTRESTO [Suspect]
     Active Substance: SACUBITRIL\VALSARTAN
     Indication: Product used for unknown indication
     Dosage: UNK (STARTED ENTRESTO APPROX 2 WEEKS AGO)
     Route: 065

REACTIONS (7)
  - Diarrhoea [Unknown]
  - Hypotension [Not Recovered/Not Resolved]
  - Heart rate decreased [Unknown]
  - Lacrimation increased [Unknown]
  - Swelling of eyelid [Unknown]
  - Erythema of eyelid [Unknown]
  - Cough [Unknown]
